FAERS Safety Report 6882472-6 (Version None)
Quarter: 2010Q3

REPORT INFORMATION
  Report Type: 
  Country: None (occurrence: None)
  Receive Date: 20100729
  Receipt Date: 20100719
  Transmission Date: 20110219
  Serious: Yes (Death)
  Sender: FDA-Public Use
  Company Number: GB-BRACCO-BRO-008668

PATIENT
  Sex: Male
  Weight: 90 kg

DRUGS (4)
  1. PROHANCE [Suspect]
     Indication: ANGIOGRAM
     Route: 042
     Dates: start: 20050427, end: 20050427
  2. PROHANCE [Suspect]
     Indication: ARTHRALGIA
     Route: 042
     Dates: start: 20050427, end: 20050427
  3. PROHANCE [Suspect]
     Indication: BACK PAIN
     Route: 042
     Dates: start: 20050427, end: 20050427
  4. VALIUM [Concomitant]
     Indication: ANXIETY
     Route: 048
     Dates: start: 20050427, end: 20050427

REACTIONS (5)
  - CIRCULATORY COLLAPSE [None]
  - COUGH [None]
  - DEATH [None]
  - DYSPNOEA [None]
  - LOSS OF CONSCIOUSNESS [None]
